APPROVED DRUG PRODUCT: PERPHENAZINE AND AMITRIPTYLINE HYDROCHLORIDE
Active Ingredient: AMITRIPTYLINE HYDROCHLORIDE; PERPHENAZINE
Strength: 50MG;4MG
Dosage Form/Route: TABLET;ORAL
Application: A071863 | Product #001
Applicant: CHARTWELL RX SCIENCES LLC
Approved: Dec 21, 1987 | RLD: No | RS: No | Type: DISCN